FAERS Safety Report 25780547 (Version 1)
Quarter: 2025Q3

REPORT INFORMATION
  Report Type: Report from Study
  Country: GB (occurrence: GB)
  Receive Date: 20250909
  Receipt Date: 20250909
  Transmission Date: 20251020
  Serious: Yes (Hospitalization, Other)
  Sender: ALEXION PHARMACEUTICALS
  Company Number: GB-AstraZeneca-CH-00944659A

PATIENT
  Age: 93 Year
  Sex: Female

DRUGS (2)
  1. BENRALIZUMAB [Suspect]
     Active Substance: BENRALIZUMAB
     Indication: Asthma
  2. BENRALIZUMAB [Suspect]
     Active Substance: BENRALIZUMAB

REACTIONS (8)
  - Fracture [Unknown]
  - Haematochezia [Unknown]
  - Pain [Unknown]
  - Normocytic anaemia [Unknown]
  - Fall [Unknown]
  - Balance disorder [Unknown]
  - Colon cancer [Unknown]
  - Limb injury [Unknown]
